FAERS Safety Report 13641639 (Version 7)
Quarter: 2021Q3

REPORT INFORMATION
  Report Type: Spontaneous
  Country: CA (occurrence: CA)
  Receive Date: 20170612
  Receipt Date: 20210813
  Transmission Date: 20211014
  Serious: Yes (Hospitalization, Congenital Anomaly, Other)
  Sender: FDA-Public Use
  Company Number: CA-JNJFOC-20170602039

PATIENT
  Age: 6 Decade
  Sex: Female

DRUGS (34)
  1. HYDROXYCHLOROQUINE [Suspect]
     Active Substance: HYDROXYCHLOROQUINE
     Indication: PRODUCT USED FOR UNKNOWN INDICATION
     Route: 065
  2. REMICADE [Suspect]
     Active Substance: INFLIXIMAB
     Indication: RHEUMATOID ARTHRITIS
     Route: 042
     Dates: start: 20160115
  3. VARICELLA?ZOSTER IMMUNE GLOBULIN [Suspect]
     Active Substance: HUMAN VARICELLA-ZOSTER IMMUNE GLOBULIN
     Indication: PRODUCT USED FOR UNKNOWN INDICATION
     Route: 030
  4. MYOCHRYSINE [Suspect]
     Active Substance: GOLD SODIUM THIOMALATE
     Indication: PRODUCT USED FOR UNKNOWN INDICATION
     Route: 030
  5. SULFASALAZINE. [Suspect]
     Active Substance: SULFASALAZINE
     Indication: RHEUMATOID ARTHRITIS
     Route: 048
  6. ISONIAZID. [Suspect]
     Active Substance: ISONIAZID
     Indication: PROPHYLAXIS
  7. REMICADE [Suspect]
     Active Substance: INFLIXIMAB
     Route: 042
  8. HYDROXYCHLOROQUINE SULFATE. [Suspect]
     Active Substance: HYDROXYCHLOROQUINE SULFATE
     Route: 048
  9. VARIZIG [Suspect]
     Active Substance: HUMAN VARICELLA-ZOSTER IMMUNE GLOBULIN
     Indication: PRODUCT USED FOR UNKNOWN INDICATION
     Route: 030
  10. ARAVA [Suspect]
     Active Substance: LEFLUNOMIDE
     Route: 048
  11. CELEBREX [Suspect]
     Active Substance: CELECOXIB
     Indication: PRODUCT USED FOR UNKNOWN INDICATION
     Route: 048
  12. SULFASALAZINE. [Suspect]
     Active Substance: SULFASALAZINE
     Route: 065
  13. CELEBREX [Concomitant]
     Active Substance: CELECOXIB
     Route: 048
  14. REMICADE [Suspect]
     Active Substance: INFLIXIMAB
     Route: 042
     Dates: start: 20160302
  15. REMICADE [Suspect]
     Active Substance: INFLIXIMAB
     Route: 042
     Dates: start: 20160317
  16. ARAVA [Suspect]
     Active Substance: LEFLUNOMIDE
     Indication: PRODUCT USED FOR UNKNOWN INDICATION
     Route: 048
  17. METHOTREXATE. [Suspect]
     Active Substance: METHOTREXATE
     Dosage: 20?25MG
     Route: 058
  18. ISONIAZID. [Suspect]
     Active Substance: ISONIAZID
     Indication: PRODUCT USED FOR UNKNOWN INDICATION
     Route: 065
  19. ISONIAZID. [Concomitant]
     Active Substance: ISONIAZID
     Route: 065
  20. REMICADE [Suspect]
     Active Substance: INFLIXIMAB
     Route: 042
  21. ZOSTAVAX [Suspect]
     Active Substance: VARICELLA-ZOSTER VIRUS STRAIN OKA/MERCK LIVE ANTIGEN
     Indication: PRODUCT USED FOR UNKNOWN INDICATION
     Route: 058
  22. HYDROXYCHLOROQUINE SULFATE. [Suspect]
     Active Substance: HYDROXYCHLOROQUINE SULFATE
     Route: 065
  23. SULFASALAZINE. [Suspect]
     Active Substance: SULFASALAZINE
     Dosage: 2000 MG
     Route: 048
  24. CELEBREX [Concomitant]
     Active Substance: CELECOXIB
     Indication: PRODUCT USED FOR UNKNOWN INDICATION
     Route: 065
  25. ACTEMRA [Suspect]
     Active Substance: TOCILIZUMAB
     Indication: PRODUCT USED FOR UNKNOWN INDICATION
     Route: 065
  26. ARAVA [Suspect]
     Active Substance: LEFLUNOMIDE
     Route: 065
  27. GOLD [Suspect]
     Active Substance: GOLD
     Indication: PRODUCT USED FOR UNKNOWN INDICATION
     Route: 030
  28. VARICELLA?ZOSTER IMMUNE GLOBULIN [Suspect]
     Active Substance: HUMAN VARICELLA-ZOSTER IMMUNE GLOBULIN
     Indication: PRODUCT USED FOR UNKNOWN INDICATION
     Route: 030
  29. ZOSTAVAX [Suspect]
     Active Substance: VARICELLA-ZOSTER VIRUS STRAIN OKA/MERCK LIVE ANTIGEN
     Route: 065
     Dates: start: 201706
  30. HYDROXYCHLOROQUINE SULFATE. [Suspect]
     Active Substance: HYDROXYCHLOROQUINE SULFATE
     Indication: PRODUCT USED FOR UNKNOWN INDICATION
     Route: 048
  31. HYDROXYCHLOROQUINE SULFATE. [Suspect]
     Active Substance: HYDROXYCHLOROQUINE SULFATE
     Route: 065
  32. HYDROXYCHLOROQUINE SULFATE. [Suspect]
     Active Substance: HYDROXYCHLOROQUINE SULFATE
     Route: 048
  33. METHOTREXATE. [Suspect]
     Active Substance: METHOTREXATE
     Indication: RHEUMATOID ARTHRITIS
     Route: 058
  34. PLAQUENIL [HYDROXYCHLOROQUINE PHOSPHATE] [Suspect]
     Active Substance: HYDROXYCHLOROQUINE DIPHOSPHATE
     Indication: PRODUCT USED FOR UNKNOWN INDICATION
     Route: 048

REACTIONS (29)
  - C-reactive protein increased [Unknown]
  - Hepatic cyst [Not Recovered/Not Resolved]
  - Rheumatoid arthritis [Unknown]
  - Arthralgia [Unknown]
  - Mouth ulceration [Not Recovered/Not Resolved]
  - Pulmonary mass [Not Recovered/Not Resolved]
  - Contraindication to vaccination [Unknown]
  - Pulmonary fibrosis [Unknown]
  - Joint swelling [Not Recovered/Not Resolved]
  - Anaemia of chronic disease [Unknown]
  - Drug ineffective [Not Recovered/Not Resolved]
  - Hepatic haematoma [Not Recovered/Not Resolved]
  - Tuberculosis [Unknown]
  - Hepatitis B core antibody positive [Not Recovered/Not Resolved]
  - Escherichia urinary tract infection [Not Recovered/Not Resolved]
  - Pneumonia cryptococcal [Unknown]
  - Headache [Not Recovered/Not Resolved]
  - Fungal infection [Not Recovered/Not Resolved]
  - Interferon gamma release assay positive [Unknown]
  - Musculoskeletal stiffness [Not Recovered/Not Resolved]
  - Lymphadenopathy [Not Recovered/Not Resolved]
  - Haemodilution [Unknown]
  - Hepatic lesion [Unknown]
  - Renal cyst [Not Recovered/Not Resolved]
  - Thalassaemia [Unknown]
  - Neutropenia [Not Recovered/Not Resolved]
  - Microcytic anaemia [Not Recovered/Not Resolved]
  - Pyrexia [Not Recovered/Not Resolved]
  - Abdominal pain upper [Not Recovered/Not Resolved]

NARRATIVE: CASE EVENT DATE: 2016
